FAERS Safety Report 20235857 (Version 3)
Quarter: 2022Q1

REPORT INFORMATION
  Report Type: Report from Study
  Country: GR (occurrence: GR)
  Receive Date: 20211228
  Receipt Date: 20220105
  Transmission Date: 20220423
  Serious: Yes (Hospitalization)
  Sender: FDA-Public Use
  Company Number: GR-ABBVIE-21K-066-4213107-00

PATIENT
  Age: 84 Year
  Sex: Male

DRUGS (8)
  1. CARBIDOPA\LEVODOPA [Suspect]
     Active Substance: CARBIDOPA\LEVODOPA
     Indication: Parkinson^s disease
     Dosage: MORNING DOSE: 11.0ML; CONTINUOUS RATE: 3.3ML/H; EXTRA DOSE: 1.4ML
     Route: 050
     Dates: start: 20180920, end: 20211222
  2. CARBIDOPA\LEVODOPA [Suspect]
     Active Substance: CARBIDOPA\LEVODOPA
     Dosage: MORNING DOSE: 11.0 ML; CONTINUOUS RATE: 3.3 ML/H; EXTRA DOSE: 1.4 ML
     Route: 050
     Dates: start: 20211229
  3. XARELTO [Suspect]
     Active Substance: RIVAROXABAN
     Indication: Product used for unknown indication
     Route: 048
     Dates: end: 20211221
  4. SAGILIA [Concomitant]
     Indication: Parkinson^s disease
     Route: 048
  5. RIVETAL [Concomitant]
     Indication: Dementia
     Dosage: 2 DOSES OF NOT REPORTED DOSE
     Route: 048
  6. LEVOTHYROXINE SODIUM [Concomitant]
     Active Substance: LEVOTHYROXINE SODIUM
     Indication: Hypothyroidism
     Route: 048
  7. FLUDEX [Concomitant]
     Indication: Product used for unknown indication
     Dosage: 1.5MG
     Route: 048
  8. AMIODARONE HYDROCHLORIDE [Concomitant]
     Active Substance: AMIODARONE HYDROCHLORIDE
     Indication: Product used for unknown indication

REACTIONS (5)
  - Haematocrit decreased [Recovering/Resolving]
  - Device placement issue [Recovered/Resolved]
  - Bezoar [Recovered/Resolved]
  - Medical device change [Unknown]
  - Device physical property issue [Unknown]

NARRATIVE: CASE EVENT DATE: 20210101
